FAERS Safety Report 16770934 (Version 1)
Quarter: 2019Q3

REPORT INFORMATION
  Report Type: Spontaneous
  Country: GB (occurrence: GB)
  Receive Date: 20190904
  Receipt Date: 20190904
  Transmission Date: 20191005
  Serious: Yes (Other)
  Sender: FDA-Public Use
  Company Number: GB-TEVA-2019-GB-1100995

PATIENT
  Age: 26 Year
  Sex: Female
  Weight: 63 kg

DRUGS (2)
  1. BETNOVATE [Concomitant]
     Active Substance: BETAMETHASONE
  2. OMEPRAZOLE. [Suspect]
     Active Substance: OMEPRAZOLE
     Indication: GASTRIC ULCER
     Dosage: 1 DOSAGE FORMS DAILY;
     Route: 048
     Dates: start: 20190604

REACTIONS (1)
  - Abdominal pain upper [Recovered/Resolved]

NARRATIVE: CASE EVENT DATE: 20190605
